FAERS Safety Report 10186329 (Version 1)
Quarter: 2014Q2

REPORT INFORMATION
  Report Type: Spontaneous
  Country: US (occurrence: US)
  Receive Date: 20140521
  Receipt Date: 20140521
  Transmission Date: 20141212
  Serious: No
  Sender: FDA-Public Use
  Company Number: US-ASTRAZENECA-2014SE10597

PATIENT
  Age: 93 Year
  Sex: Male
  Weight: 95.3 kg

DRUGS (3)
  1. PULMICORT FLEXHALER [Suspect]
     Indication: RESPIRATORY DISORDER
     Dosage: 2 PUFFS AM 2PUFFS PM BID
     Route: 055
     Dates: start: 2009
  2. NASONEX [Suspect]
     Dosage: UNKNOWN BID
     Route: 045
  3. OTHERS (UNSPECIFIED) [Concomitant]
     Dosage: UNKNOWN UNK

REACTIONS (3)
  - Deafness [Unknown]
  - Body height decreased [Not Recovered/Not Resolved]
  - Intentional product misuse [Unknown]
